FAERS Safety Report 22656216 (Version 1)
Quarter: 2023Q2

REPORT INFORMATION
  Report Type: Spontaneous
  Country: FR (occurrence: FR)
  Receive Date: 20230629
  Receipt Date: 20230629
  Transmission Date: 20230722
  Serious: Yes (Other)
  Sender: FDA-Public Use
  Company Number: None

PATIENT
  Age: 80 Year
  Sex: Male
  Weight: 72 kg

DRUGS (1)
  1. OFEV [Suspect]
     Active Substance: NINTEDANIB
     Indication: Idiopathic pulmonary fibrosis
     Dosage: 2 DOSAGE FORM 2 PAR JOUR
     Route: 048
     Dates: start: 20230305

REACTIONS (1)
  - Chorea [Not Recovered/Not Resolved]

NARRATIVE: CASE EVENT DATE: 20230315
